FAERS Safety Report 18154645 (Version 1)
Quarter: 2020Q3

REPORT INFORMATION
  Report Type: Other
  Country: NO (occurrence: NO)
  Receive Date: 20200817
  Receipt Date: 20200817
  Transmission Date: 20201103
  Serious: Yes (Disabling)
  Sender: FDA-Public Use
  Company Number: NO-DENTSPLY-2020SCDP000254

PATIENT
  Age: 57 Year
  Sex: Male

DRUGS (3)
  1. ARCOXIA [Concomitant]
     Active Substance: ETORICOXIB
     Indication: ROTATOR CUFF SYNDROME
     Dosage: 90 MILLIGRAM, QD, 1 TABLET PER DAY
     Route: 048
     Dates: start: 20180918, end: 20181003
  2. XYLOCAINE [Suspect]
     Active Substance: LIDOCAINE HYDROCHLORIDE
     Indication: ROTATOR CUFF SYNDROME
     Dosage: 0.5 MILLILITER INJECTED NEAR THE TENDON ATTACHMENT
     Route: 051
     Dates: start: 20181003, end: 20181003
  3. KENACORT [Suspect]
     Active Substance: TRIAMCINOLONE
     Indication: ROTATOR CUFF SYNDROME
     Dosage: 1 DOSAGE FORM, 1 AMPULLE INJECTED NEAR THE SUPRASPINATUS, SUSPENSION FOR INJECTION
     Dates: start: 20181003, end: 20181003

REACTIONS (4)
  - Myalgia [Recovered/Resolved]
  - Urticaria chronic [None]
  - Influenza like illness [Recovered/Resolved]
  - Pyrexia [Recovered/Resolved]

NARRATIVE: CASE EVENT DATE: 20181003
